FAERS Safety Report 11227224 (Version 1)
Quarter: 2015Q2

REPORT INFORMATION
  Report Type: Spontaneous
  Country: US (occurrence: None)
  Receive Date: 20150626
  Receipt Date: 20150626
  Transmission Date: 20150821
  Serious: Yes (Hospitalization)
  Sender: FDA-Public Use
  Company Number: None

PATIENT
  Age: 39 Year
  Sex: Female
  Weight: 168 kg

DRUGS (3)
  1. IBUPROFEN. [Concomitant]
     Active Substance: IBUPROFEN
  2. PRIMROSE OIL [Concomitant]
  3. LOMEDIA 24 FE [Suspect]
     Active Substance: ETHINYL ESTRADIOL\NORETHINDRONE ACETATE
     Indication: PREMENSTRUAL SYNDROME
     Dosage: TAKEN BY MOUTH
     Dates: start: 20150609, end: 20150623

REACTIONS (1)
  - Thrombosis [None]

NARRATIVE: CASE EVENT DATE: 20150623
